FAERS Safety Report 16234458 (Version 2)
Quarter: 2019Q2

REPORT INFORMATION
  Report Type: Report from Study
  Country: US (occurrence: US)
  Receive Date: 20190424
  Receipt Date: 20190530
  Transmission Date: 20190711
  Serious: Yes (Life-Threatening, Other)
  Sender: FDA-Public Use
  Company Number: US-MYLANLABS-2019M1038113

PATIENT
  Age: 77 Year
  Sex: Female
  Weight: 70.25 kg

DRUGS (5)
  1. MELPHALAN. [Suspect]
     Active Substance: MELPHALAN
     Indication: METASTASES TO LIVER
     Dosage: 167.1 MILLIGRAM, TOTAL
     Route: 025
     Dates: start: 20180907
  2. SYNTHROID [Concomitant]
     Active Substance: LEVOTHYROXINE SODIUM
     Dosage: 100 MICROGRAM, QID
     Route: 048
     Dates: start: 1971
  3. PANTOPRAZOLE [Concomitant]
     Active Substance: PANTOPRAZOLE
     Indication: PROPHYLAXIS
     Dosage: 40 MILLIGRAM, Q8H
     Route: 042
     Dates: start: 20190404, end: 20190407
  4. HEPARIN [Concomitant]
     Active Substance: HEPARIN SODIUM
  5. PROTAMINE [Concomitant]
     Active Substance: PROTAMINE
     Dosage: UNK

REACTIONS (5)
  - Hypokalaemia [Recovered/Resolved]
  - Hypocalcaemia [Recovered/Resolved]
  - Bradycardia [Recovered/Resolved]
  - Hypoxia [Recovered/Resolved]
  - Cardiac arrest [Recovered/Resolved]

NARRATIVE: CASE EVENT DATE: 20190405
